FAERS Safety Report 24393997 (Version 1)
Quarter: 2024Q4

REPORT INFORMATION
  Report Type: Spontaneous
  Country: MX (occurrence: MX)
  Receive Date: 20241003
  Receipt Date: 20241003
  Transmission Date: 20250115
  Serious: Yes (Other)
  Sender: JOHNSON AND JOHNSON
  Company Number: MX-JNJFOC-20240971134

PATIENT
  Age: 37 Year
  Sex: Female

DRUGS (1)
  1. RISPERDAL [Suspect]
     Active Substance: RISPERIDONE
     Indication: Product used for unknown indication
     Route: 065
     Dates: start: 2009

REACTIONS (5)
  - Sexual abuse [Unknown]
  - Anxiety [Unknown]
  - Depression [Unknown]
  - Amnesia [Unknown]
  - Head injury [Unknown]

NARRATIVE: CASE EVENT DATE: 20200101
